FAERS Safety Report 4947268-0 (Version None)
Quarter: 2006Q1

REPORT INFORMATION
  Report Type: 
  Country: None (occurrence: None)
  Receive Date: 20060313
  Receipt Date: 20060227
  Transmission Date: 20060701
  Serious: Yes (Disabling, Other)
  Sender: FDA-Public Use
  Company Number: 222595

PATIENT
  Age: 47 Year
  Sex: Female

DRUGS (4)
  1. HERCEPTIN [Suspect]
     Indication: BREAST CANCER
     Dosage: 6 MG/KG, Q3W, INTRAVENOUS
     Route: 042
     Dates: start: 20030601
  2. ARIMIDEX [Concomitant]
  3. ZOMETA [Concomitant]
  4. CHINESE HERBAL MEDICINE (HERBAL, HOMEOPATHIC, + DIETARY SUPPLEMENTS) [Concomitant]

REACTIONS (6)
  - BREAST CANCER RECURRENT [None]
  - MACULAR OEDEMA [None]
  - METASTASES TO CENTRAL NERVOUS SYSTEM [None]
  - METASTASES TO LUNG [None]
  - METASTASES TO PLEURA [None]
  - NEUROPATHY [None]
